FAERS Safety Report 16277174 (Version 6)
Quarter: 2024Q4

REPORT INFORMATION
  Report Type: Spontaneous
  Country: US (occurrence: US)
  Receive Date: 20190506
  Receipt Date: 20241118
  Transmission Date: 20250115
  Serious: Yes (Other)
  Sender: PFIZER
  Company Number: US-PFIZER INC-2019190013

PATIENT
  Age: 72 Year
  Sex: Female
  Weight: 57.506 kg

DRUGS (6)
  1. IBRANCE [Suspect]
     Active Substance: PALBOCICLIB
     Indication: Breast cancer metastatic
     Dosage: 100 MG
  2. IBRANCE [Suspect]
     Active Substance: PALBOCICLIB
     Dosage: TAKE 1 CAPSULE DAILY ON DAYS 1-21 WITH FOOD + WATER. SAME TIME EVERY DAY/75 MG CAPSULE 1 CAPSULE ORA
     Route: 048
  3. IBRANCE [Suspect]
     Active Substance: PALBOCICLIB
     Dosage: 1 CAPSULE ORALLY EVERY DAY ON DAYS 1-21
  4. IBRANCE [Suspect]
     Active Substance: PALBOCICLIB
     Dosage: 75 MG PO (PER ORAL) QD (ONCE A DAY)
     Route: 048
     Dates: start: 20230906
  5. IBRANCE [Suspect]
     Active Substance: PALBOCICLIB
     Dosage: 75 MG DAILY FOR 21 DAYS AND 1 WEEK OFF
     Dates: start: 20240227
  6. FULVESTRANT [Concomitant]
     Active Substance: FULVESTRANT
     Indication: Breast cancer metastatic
     Dosage: UNK

REACTIONS (14)
  - Neutropenia [Not Recovered/Not Resolved]
  - Myelosuppression [Not Recovered/Not Resolved]
  - Hypothyroidism [Unknown]
  - Hypoaesthesia oral [Unknown]
  - Peripheral coldness [Unknown]
  - Anaemia [Not Recovered/Not Resolved]
  - Decreased appetite [Unknown]
  - Weight decreased [Unknown]
  - Hypertension [Unknown]
  - Osteoarthritis [Unknown]
  - Varicose vein [Unknown]
  - Dizziness [Unknown]
  - Anxiety [Unknown]
  - Wrong strength [Unknown]
